FAERS Safety Report 8057374-2 (Version None)
Quarter: 2012Q1

REPORT INFORMATION
  Report Type: 
  Country: None (occurrence: None)
  Receive Date: 20120119
  Receipt Date: 20111221
  Transmission Date: 20120608
  Serious: Yes (Other)
  Sender: FDA-Public Use
  Company Number: GB-PFIZER INC-2011304268

PATIENT
  Age: 85 Year
  Sex: Female

DRUGS (1)
  1. SUTENT [Suspect]
     Dosage: 37.5 MG, UNK

REACTIONS (4)
  - BACTERIAL INFECTION [None]
  - SKIN ULCER [None]
  - PYODERMA GANGRENOSUM [None]
  - LIMB INJURY [None]
